FAERS Safety Report 14193183 (Version 1)
Quarter: 2017Q4

REPORT INFORMATION
  Report Type: Spontaneous
  Country: US (occurrence: US)
  Receive Date: 20171115
  Receipt Date: 20171115
  Transmission Date: 20180321
  Serious: Yes (Other)
  Sender: FDA-Public Use
  Company Number: US-SA-2017SA223693

PATIENT
  Age: 35 Year
  Sex: Female

DRUGS (1)
  1. LANTUS [Suspect]
     Active Substance: INSULIN GLARGINE
     Indication: TYPE 1 DIABETES MELLITUS
     Dosage: 17 UNITS AM / 16 PM
     Route: 051
     Dates: start: 2007

REACTIONS (2)
  - Product use issue [Unknown]
  - Coeliac disease [Unknown]

NARRATIVE: CASE EVENT DATE: 2007
